FAERS Safety Report 13030776 (Version 1)
Quarter: 2016Q4

REPORT INFORMATION
  Report Type: Spontaneous
  Country: US (occurrence: US)
  Receive Date: 20161215
  Receipt Date: 20161215
  Transmission Date: 20170207
  Serious: No
  Sender: FDA-Public Use
  Company Number: US-BAUSCH-BL-2016-007818

PATIENT
  Age: 65 Year
  Sex: Female

DRUGS (2)
  1. APRISO [Suspect]
     Active Substance: MESALAMINE
     Indication: COLITIS ULCERATIVE
     Route: 048
  2. APRISO [Suspect]
     Active Substance: MESALAMINE
     Route: 048

REACTIONS (2)
  - Prescribed overdose [Unknown]
  - No adverse event [Unknown]
